FAERS Safety Report 4583558-1 (Version None)
Quarter: 2005Q1

REPORT INFORMATION
  Report Type: 
  Country: None (occurrence: None)
  Receive Date: 20050211
  Receipt Date: 20050207
  Transmission Date: 20050727
  Serious: Yes (Hospitalization, Other)
  Sender: FDA-Public Use
  Company Number: 2003-12-0829

PATIENT
  Age: 45 Year
  Sex: Male

DRUGS (1)
  1. INTRON A [Suspect]
     Indication: MALIGNANT MELANOMA
     Dosage: 20 MIU TIW
     Dates: start: 20030120, end: 20040120

REACTIONS (5)
  - CELLULITIS [None]
  - IMMUNOSUPPRESSION [None]
  - INFECTION [None]
  - NEUROPATHY PERIPHERAL [None]
  - RASH [None]
